FAERS Safety Report 5585849-4 (Version None)
Quarter: 2007Q4

REPORT INFORMATION
  Report Type: 
  Country: None (occurrence: None)
  Receive Date: 20071205
  Receipt Date: 20070808
  Transmission Date: 20080405
  Serious: Yes (Hospitalization)
  Sender: FDA-Public Use
  Company Number: HQWYE471109AUG07

PATIENT

DRUGS (1)
  1. EFFEXOR XR [Suspect]
     Dosage: ^2 WEEK SUPPLY OR LESS^ (OVERDOSE AMOUNT)

REACTIONS (2)
  - INTENTIONAL OVERDOSE [None]
  - SUICIDE ATTEMPT [None]
